FAERS Safety Report 4341043-6 (Version None)
Quarter: 2004Q2

REPORT INFORMATION
  Report Type: 
  Country: None (occurrence: None)
  Receive Date: 20040419
  Receipt Date: 20040408
  Transmission Date: 20050107
  Serious: Yes (Hospitalization, Other)
  Sender: FDA-Public Use
  Company Number: JP-MERCK-0404USA01247

PATIENT
  Age: 47 Year
  Sex: Male

DRUGS (2)
  1. CEFAZOLIN SODIUM [Suspect]
     Route: 065
  2. PEPCID [Suspect]
     Route: 048
     Dates: end: 20030318

REACTIONS (5)
  - AGRANULOCYTOSIS [None]
  - DIALYSIS [None]
  - DUODENAL PERFORATION [None]
  - ERYTHEMA [None]
  - RENAL FAILURE [None]
